FAERS Safety Report 25354709 (Version 1)
Quarter: 2025Q2

REPORT INFORMATION
  Report Type: Spontaneous
  Country: US (occurrence: US)
  Receive Date: 20250524
  Receipt Date: 20250524
  Transmission Date: 20250717
  Serious: Yes (Other)
  Sender: STRIDES
  Company Number: US-STRIDES ARCOLAB LIMITED-2024SP016443

PATIENT
  Age: 57 Year
  Sex: Female

DRUGS (15)
  1. DUTASTERIDE [Suspect]
     Active Substance: DUTASTERIDE
     Indication: Hidradenitis
     Route: 065
  2. MINOCYCLINE [Suspect]
     Active Substance: MINOCYCLINE HYDROCHLORIDE
     Indication: Hidradenitis
     Route: 065
  3. DAPSONE [Suspect]
     Active Substance: DAPSONE
     Indication: Hidradenitis
     Route: 048
  4. DAPSONE [Suspect]
     Active Substance: DAPSONE
     Route: 061
  5. ETANERCEPT [Suspect]
     Active Substance: ETANERCEPT
     Indication: Hidradenitis
     Route: 065
  6. DULOXETINE [Concomitant]
     Active Substance: DULOXETINE
     Indication: Pain
     Route: 065
  7. DULOXETINE [Concomitant]
     Active Substance: DULOXETINE
     Indication: Depression
  8. LINEZOLID [Concomitant]
     Active Substance: LINEZOLID
     Indication: Hidradenitis
     Route: 042
     Dates: start: 201308
  9. LINEZOLID [Concomitant]
     Active Substance: LINEZOLID
     Route: 065
     Dates: start: 201308
  10. MEROPENEM [Concomitant]
     Active Substance: MEROPENEM
     Indication: Hidradenitis
     Route: 042
     Dates: start: 201308
  11. RIFAMPIN [Concomitant]
     Active Substance: RIFAMPIN
     Indication: Hidradenitis
     Route: 048
  12. TRIAMCINOLONE [Concomitant]
     Active Substance: TRIAMCINOLONE
     Indication: Hidradenitis
     Route: 026
  13. SILVER NITRATE [Concomitant]
     Active Substance: SILVER NITRATE
     Indication: Hidradenitis
     Route: 065
  14. PREGABALIN [Concomitant]
     Active Substance: PREGABALIN
     Indication: Pain
     Route: 065
  15. PREGABALIN [Concomitant]
     Active Substance: PREGABALIN
     Indication: Depression

REACTIONS (2)
  - Therapy non-responder [Unknown]
  - Off label use [Unknown]
